FAERS Safety Report 6775352-8 (Version None)
Quarter: 2010Q2

REPORT INFORMATION
  Report Type: 
  Country: None (occurrence: None)
  Receive Date: 20100617
  Receipt Date: 20100615
  Transmission Date: 20101027
  Serious: Yes (Hospitalization, Other)
  Sender: FDA-Public Use
  Company Number: US-ELI_LILLY_AND_COMPANY-US200906005608

PATIENT
  Sex: Female
  Weight: 81.633 kg

DRUGS (25)
  1. BYETTA [Suspect]
     Dosage: UNK, UNKNOWN
     Dates: start: 20061020, end: 20061220
  2. BYETTA [Suspect]
     Dosage: 5 UG, UNKNOWN
     Dates: start: 20080201, end: 20080801
  3. HUMALOG MIX /01500801/ [Concomitant]
     Dosage: 40 U, EACH MORNING
  4. HUMALOG MIX /01500801/ [Concomitant]
     Dosage: 28 U, EACH EVENING
  5. LUNESTA [Concomitant]
     Dosage: UNK, EACH EVENING
  6. PLAVIX [Concomitant]
     Dosage: 75 MG, DAILY (1/D)
  7. METOPROLOL [Concomitant]
     Dosage: 50 MG, DAILY (1/D)
  8. NEXIUM [Concomitant]
     Dosage: 40 MG, UNKNOWN
  9. METOCLOPRAMIDE [Concomitant]
     Dosage: UNK, UNKNOWN
  10. TRICOR [Concomitant]
     Dosage: 145 MG, UNKNOWN
  11. VYTORIN [Concomitant]
     Dosage: UNK, UNKNOWN
  12. GLUCOVANCE [Concomitant]
     Dosage: UNK, UNKNOWN
  13. AMBIEN [Concomitant]
     Dosage: 12.5 MG, UNKNOWN
  14. CYMBALTA [Concomitant]
     Dosage: 30 MG, UNKNOWN
  15. SEROQUEL [Concomitant]
     Dosage: 400 MG, UNKNOWN
  16. ALPRAZOLAM [Concomitant]
     Dosage: 0.25 MG, UNKNOWN
  17. HYOSCYAMINE [Concomitant]
     Dosage: 0.125 MG, UNKNOWN
     Route: 060
  18. IMDUR [Concomitant]
     Dosage: UNK, UNKNOWN
  19. ASPIRIN [Concomitant]
     Dosage: UNK, UNKNOWN
  20. SULCRATE [Concomitant]
     Dosage: 1 G, UNKNOWN
  21. CIPRO [Concomitant]
     Dosage: 500 MG, UNKNOWN
  22. HYDROXYZINE PAMOATE [Concomitant]
     Dosage: 25 MG, UNKNOWN
  23. ISOSORBIDE                         /00586302/ [Concomitant]
     Dosage: 20 MG, UNK
  24. PROPOXYPHENE [Concomitant]
     Dosage: UNK, UNKNOWN
  25. ZOLOFT [Concomitant]
     Dosage: 50 MG, UNKNOWN

REACTIONS (6)
  - MALAISE [None]
  - NAUSEA [None]
  - OFF LABEL USE [None]
  - PANCREATITIS ACUTE [None]
  - PANCREATITIS CHRONIC [None]
  - RENAL INJURY [None]
